FAERS Safety Report 26205703 (Version 1)
Quarter: 2025Q4

REPORT INFORMATION
  Report Type: Spontaneous
  Country: JP (occurrence: JP)
  Receive Date: 20251229
  Receipt Date: 20251229
  Transmission Date: 20260117
  Serious: Yes (Other)
  Sender: MERCK KGAA
  Company Number: JP-Merck Healthcare KGaA-2025015685

PATIENT
  Age: 59 Year
  Sex: Female
  Weight: 90 kg

DRUGS (6)
  1. METGLUCO [Suspect]
     Active Substance: METFORMIN HYDROCHLORIDE
     Indication: Type 2 diabetes mellitus
     Dates: start: 202406
  2. TIRZEPATIDE [Suspect]
     Active Substance: TIRZEPATIDE
     Indication: Type 2 diabetes mellitus
     Dates: start: 202406, end: 202407
  3. TIRZEPATIDE [Suspect]
     Active Substance: TIRZEPATIDE
     Dosage: QW
     Dates: start: 202407, end: 202408
  4. TIRZEPATIDE [Suspect]
     Active Substance: TIRZEPATIDE
     Dosage: QW
     Dates: start: 202408
  5. INSULIN NOS [Suspect]
     Active Substance: INSULIN NOS
     Indication: Type 2 diabetes mellitus
     Dosage: PREMIXED INSULIN ANALOGUE 18 UNITS PER DAY
     Dates: start: 202406, end: 202406
  6. INSULIN NOS [Suspect]
     Active Substance: INSULIN NOS
     Dosage: PREMIXED INSULIN ANALOGUE 9 UNITS PER DAY
     Dates: start: 202406, end: 202407

REACTIONS (7)
  - Cushing^s syndrome [Unknown]
  - Impaired gastric emptying [Recovered/Resolved]
  - Cholelithiasis [Unknown]
  - Mass [Unknown]
  - Hepatic steatosis [Unknown]
  - Nephropathy [Not Recovered/Not Resolved]
  - Weight decreased [Unknown]
